FAERS Safety Report 6999338-3 (Version None)
Quarter: 2010Q3

REPORT INFORMATION
  Report Type: 
  Country: None (occurrence: None)
  Receive Date: 20100920
  Receipt Date: 20090717
  Transmission Date: 20110219
  Serious: Yes (Death, Other)
  Sender: FDA-Public Use
  Company Number: US-ASTRAZENECA-2007UW09487

PATIENT
  Age: 9963 Day
  Sex: Male

DRUGS (26)
  1. SEROQUEL [Suspect]
     Indication: BIPOLAR DISORDER
     Route: 048
     Dates: start: 19980401, end: 20030316
  2. SEROQUEL [Suspect]
     Indication: DEPRESSION
     Route: 048
     Dates: start: 19980401, end: 20030316
  3. SEROQUEL [Suspect]
     Indication: SCHIZOPHRENIA
     Route: 048
     Dates: start: 19980401, end: 20030316
  4. SEROQUEL [Suspect]
     Dosage: 100 TO 200 MG
     Route: 048
     Dates: start: 19980420
  5. SEROQUEL [Suspect]
     Dosage: 100 TO 200 MG
     Route: 048
     Dates: start: 19980420
  6. SEROQUEL [Suspect]
     Dosage: 100 TO 200 MG
     Route: 048
     Dates: start: 19980420
  7. SEROQUEL [Suspect]
     Dosage: 200 TO 400 MG EVERY MORNING
     Route: 048
     Dates: start: 20010428
  8. SEROQUEL [Suspect]
     Dosage: 200 TO 400 MG EVERY MORNING
     Route: 048
     Dates: start: 20010428
  9. SEROQUEL [Suspect]
     Dosage: 200 TO 400 MG EVERY MORNING
     Route: 048
     Dates: start: 20010428
  10. TRIHEXYPHENIDYL HCL [Concomitant]
  11. DIPHENHYDRAMINE HCL [Concomitant]
     Indication: SLEEP DISORDER
     Dosage: 50 MG 1 PO EVERY HS AS NEEDED
     Route: 048
     Dates: start: 20010428
  12. CLONAZEPAM [Concomitant]
     Dosage: 0.5 MG BID AS NEEDED
     Dates: start: 20010428
  13. DEPAKOTE [Concomitant]
     Route: 048
     Dates: start: 20010428
  14. LIPITOR [Concomitant]
  15. INSULIN HUMAN [Concomitant]
  16. ALLEGRA [Concomitant]
  17. BIAXIN [Concomitant]
  18. PEPCID [Concomitant]
  19. GLUCOTROL XL [Concomitant]
  20. CO-TUSSIN LIQUID [Concomitant]
  21. LEVAQUIN [Concomitant]
  22. LORTAB [Concomitant]
  23. NAVANE [Concomitant]
  24. AMOXICILLIN [Concomitant]
  25. TETRACYCLINE [Concomitant]
  26. ERYTHROMYCIN [Concomitant]

REACTIONS (3)
  - DIABETIC KETOACIDOSIS [None]
  - PANCREATITIS ACUTE [None]
  - TYPE 2 DIABETES MELLITUS [None]
